FAERS Safety Report 7866554 (Version 3)
Quarter: 2013Q4

REPORT INFORMATION
  Report Type: Spontaneous
  Country: US (occurrence: US)
  Receive Date: 20110322
  Receipt Date: 20131223
  Transmission Date: 20140711
  Serious: Yes (Hospitalization, Other)
  Sender: FDA-Public Use
  Company Number: US-BAYER-2011-022311

PATIENT
  Age: 16 Year
  Sex: Female
  Weight: 54 kg

DRUGS (5)
  1. YAZ [Suspect]
     Indication: CONTRACEPTION
     Dosage: UNK
     Route: 048
     Dates: start: 200710, end: 200809
  2. YAZ [Suspect]
     Indication: CONTRACEPTION
     Dosage: UNK
     Route: 048
     Dates: start: 200812, end: 200812
  3. CIPROFLOXACIN [Concomitant]
     Dosage: UNK
     Dates: start: 20080517, end: 20080518
  4. HYDROCODONE W/APAP [Concomitant]
     Dosage: 5-500 MG
  5. PROMETHAZINE [Concomitant]
     Dosage: 25 MG, UNK

REACTIONS (10)
  - Cholecystitis chronic [None]
  - Biliary dyskinesia [None]
  - Scar [None]
  - Flatulence [None]
  - Abdominal distension [None]
  - Dyspepsia [None]
  - Constipation [None]
  - Diarrhoea [None]
  - Anxiety [None]
  - Depression [None]
